FAERS Safety Report 4830539-6 (Version None)
Quarter: 2005Q4

REPORT INFORMATION
  Report Type: 
  Country: None (occurrence: None)
  Receive Date: 20051115
  Receipt Date: 20051031
  Transmission Date: 20060501
  Serious: Yes (Hospitalization)
  Sender: FDA-Public Use
  Company Number: 2005-02302

PATIENT
  Age: 77 Year
  Sex: Female
  Weight: 56.3 kg

DRUGS (2)
  1. VELCADE [Suspect]
     Indication: MULTIPLE MYELOMA
     Dates: start: 20040322, end: 20041210
  2. THALIDOMIDE [Concomitant]

REACTIONS (16)
  - ABDOMINAL ADHESIONS [None]
  - ANAEMIA [None]
  - ASCITES [None]
  - BILIARY DILATATION [None]
  - COLITIS [None]
  - DIVERTICULITIS [None]
  - HIATUS HERNIA [None]
  - HYPOCALCAEMIA [None]
  - HYPOKALAEMIA [None]
  - HYPONATRAEMIA [None]
  - HYPOPHOSPHATAEMIA [None]
  - LIPASE INCREASED [None]
  - MALNUTRITION [None]
  - POSTOPERATIVE ADHESION [None]
  - SMALL INTESTINAL OBSTRUCTION [None]
  - VOLVULUS [None]
